FAERS Safety Report 21597707 (Version 1)
Quarter: 2022Q4

REPORT INFORMATION
  Report Type: Report from Study
  Country: US (occurrence: US)
  Receive Date: 20221115
  Receipt Date: 20221115
  Transmission Date: 20230113
  Serious: Yes (Life-Threatening, Hospitalization)
  Sender: FDA-Public Use
  Company Number: US-SERVIER-S22011641

PATIENT

DRUGS (8)
  1. PEGASPARGASE [Suspect]
     Active Substance: PEGASPARGASE
     Indication: B-cell type acute leukaemia
     Dosage: 2500 IU/M2, EVERY 2 WEEKS
     Route: 042
     Dates: start: 20220207, end: 20221006
  2. CYTARABINE [Suspect]
     Active Substance: CYTARABINE
     Indication: B-cell type acute leukaemia
     Dosage: 40 MG ON D1 OF EVERY 9 WEEKS
     Route: 037
     Dates: start: 20220202, end: 20220826
  3. DEXAMETHASONE [Suspect]
     Active Substance: DEXAMETHASONE
     Indication: B-cell type acute leukaemia
     Dosage: 6 MG, D1-D5 OF EVERY 3 WEEKS CYCLE
     Route: 048
     Dates: start: 20220202, end: 20221010
  4. VINCRISTINE [Suspect]
     Active Substance: VINCRISTINE
     Indication: B-cell type acute leukaemia
     Dosage: 2 MG/M2, D1 OF EVERY 3 WEEKS CYCLE
     Route: 042
     Dates: start: 20220205, end: 20221006
  5. METHOTREXATE [Suspect]
     Active Substance: METHOTREXATE
     Indication: B-cell type acute leukaemia
     Dosage: 30 MG/M2, D1, D8, D15 OF EACH 3 WEEK CYCLE
     Route: 042
     Dates: start: 20220512, end: 20221020
  6. METHOTREXATE [Suspect]
     Active Substance: METHOTREXATE
     Dosage: 12 MG, D1 OF EVERY 9 WEEKS
     Route: 037
     Dates: start: 20220218, end: 20220826
  7. HYDROCORTISONE [Suspect]
     Active Substance: HYDROCORTISONE
     Indication: B-cell type acute leukaemia
     Dosage: 15 MG, D1 OF EVERY 9 WEEKS
     Route: 037
     Dates: start: 20220218, end: 20220826
  8. MERCAPTOPURINE [Suspect]
     Active Substance: MERCAPTOPURINE
     Indication: B-cell type acute leukaemia
     Dosage: 50 MG/M2, D1-D14 OF EACH 3 WEEK CYCLE
     Route: 048
     Dates: start: 20220308, end: 20221019

REACTIONS (1)
  - Embolism [Recovered/Resolved]

NARRATIVE: CASE EVENT DATE: 20221020
